FAERS Safety Report 8761730 (Version 1)
Quarter: 2012Q4

REPORT INFORMATION
  Report Type: 
  Country: US (occurrence: None)
  Receive Date: 20120830
  Receipt Date: 20120830
  Transmission Date: 20130627
  Serious: Yes (Hospitalization)
  Sender: FDA-Public Use
  Company Number: None

PATIENT
  Sex: Male
  Weight: 105.9 kg

DRUGS (3)
  1. CYCLOPHOSPHAMIDE [Suspect]
  2. PENTOSTATIN [Suspect]
  3. RITUXIMAB [Suspect]

REACTIONS (1)
  - Neutrophil count decreased [None]
